FAERS Safety Report 17152760 (Version 1)
Quarter: 2019Q4

REPORT INFORMATION
  Report Type: Spontaneous
  Country: US (occurrence: US)
  Receive Date: 20191213
  Receipt Date: 20191213
  Transmission Date: 20200122
  Serious: No
  Sender: FDA-Public Use
  Company Number: US-NOVOPROD-679183

PATIENT
  Sex: Male

DRUGS (1)
  1. LEVEMIR [Suspect]
     Active Substance: INSULIN DETEMIR
     Indication: PRODUCT USED FOR UNKNOWN INDICATION
     Dosage: 80 IU
     Route: 058
     Dates: start: 20190808

REACTIONS (2)
  - Blood glucose increased [Unknown]
  - Urine output increased [Unknown]

NARRATIVE: CASE EVENT DATE: 201908
